FAERS Safety Report 9967634 (Version 1)
Quarter: 2014Q1

REPORT INFORMATION
  Report Type: Report from Study
  Country: US (occurrence: US)
  Receive Date: 20140305
  Receipt Date: 20140305
  Transmission Date: 20141002
  Serious: No
  Sender: FDA-Public Use
  Company Number: US-ABBVIE-13P-163-1139327-00

PATIENT
  Age: 62 Year
  Sex: Female

DRUGS (14)
  1. HUMIRA [Suspect]
     Indication: RHEUMATOID ARTHRITIS
     Dosage: INITIAL DOSE
     Dates: start: 20130815
  2. METHOTREXATE [Concomitant]
     Indication: PRODUCT USED FOR UNKNOWN INDICATION
     Dosage: WEEKLY
     Route: 058
  3. FOLIC ACID [Concomitant]
     Indication: PRODUCT USED FOR UNKNOWN INDICATION
     Dosage: 1MG DAILY
  4. OXYCONTIN [Concomitant]
     Indication: PAIN
  5. ALPRAZOLAM [Concomitant]
     Indication: ANXIETY
  6. ASPIRIN [Concomitant]
     Indication: ARTHRALGIA
     Dosage: 500MG DAILY
  7. HYDROCODONE [Concomitant]
     Indication: PAIN
     Dosage: 500MG DAILY
  8. FLUOCINONIDE [Concomitant]
     Indication: ECZEMA
     Dosage: APPLIED DAILY TO AREAS WHERE THERE IS ECZEMA
  9. OMEPRAZOLE [Concomitant]
     Indication: HIATUS HERNIA
     Dosage: 20MG DAILY
  10. CYMBALTA [Concomitant]
     Indication: MUSCLE SPASMS
     Dosage: 60MG DAILY 1/2 TABLET DAILY
  11. AMBIEN [Concomitant]
     Indication: INSOMNIA
     Dosage: 10MG DAILY
  12. VITAMINS D3 [Concomitant]
     Indication: PRODUCT USED FOR UNKNOWN INDICATION
  13. CALCIUM MAGNESIUM ZINC [Concomitant]
     Indication: PRODUCT USED FOR UNKNOWN INDICATION
     Dosage: DAILY
  14. MULTIVITAMIN [Concomitant]
     Indication: PRODUCT USED FOR UNKNOWN INDICATION
     Dosage: DAILY

REACTIONS (1)
  - Injection site pain [Recovered/Resolved]
